FAERS Safety Report 10495530 (Version 2)
Quarter: 2014Q4

REPORT INFORMATION
  Report Type: Spontaneous
  Country: US (occurrence: US)
  Receive Date: 20141003
  Receipt Date: 20141003
  Transmission Date: 20150528
  Serious: Yes (Death, Hospitalization)
  Sender: FDA-Public Use
  Company Number: US-ACTELION-A-US2014-104499

PATIENT
  Age: 70 Year
  Sex: Male

DRUGS (4)
  1. VELETRI [Suspect]
     Active Substance: EPOPROSTENOL
     Indication: PULMONARY ARTERIAL HYPERTENSION
     Dosage: 11 NG/KG, PER MIN
     Route: 042
     Dates: start: 20140725, end: 20140920
  2. REVATIO [Concomitant]
     Active Substance: SILDENAFIL CITRATE
     Dosage: 20 MG, TID
  3. VELETRI [Suspect]
     Active Substance: EPOPROSTENOL
     Dosage: 27 NG/KG, UNK
     Route: 042
     Dates: start: 20140717
  4. LETAIRIS [Concomitant]
     Active Substance: AMBRISENTAN
     Dosage: 10 MG, QD

REACTIONS (4)
  - Respiratory failure [Fatal]
  - Dyspnoea [Recovered/Resolved]
  - Hypoxia [Recovered/Resolved]
  - Cardiac failure [Fatal]

NARRATIVE: CASE EVENT DATE: 20140825
